FAERS Safety Report 4374046-6 (Version None)
Quarter: 2004Q2

REPORT INFORMATION
  Report Type: 
  Country: None (occurrence: None)
  Receive Date: 20040607
  Receipt Date: 20040416
  Transmission Date: 20050107
  Serious: Yes (Life-Threatening)
  Sender: FDA-Public Use
  Company Number: 200411600FR

PATIENT
  Age: 25 Year
  Sex: Female

DRUGS (1)
  1. KETEK [Suspect]
     Indication: BRONCHOPNEUMONIA
     Route: 048
     Dates: start: 20040218, end: 20040218

REACTIONS (18)
  - ALANINE AMINOTRANSFERASE INCREASED [None]
  - AMINOACIDURIA [None]
  - AMMONIA INCREASED [None]
  - APNOEA [None]
  - BLOOD CREATINE PHOSPHOKINASE INCREASED [None]
  - BLOOD KETONE BODY INCREASED [None]
  - BLOOD PYRUVIC ACID INCREASED [None]
  - CLONUS [None]
  - CONVULSIONS LOCAL [None]
  - DYSPNOEA [None]
  - EYE MOVEMENT DISORDER [None]
  - INCREASED BRONCHIAL SECRETION [None]
  - MALAISE [None]
  - MEDICATION ERROR [None]
  - MUSCLE DISORDER [None]
  - MYOGLOBIN BLOOD INCREASED [None]
  - PAIN IN EXTREMITY [None]
  - TACHYCARDIA [None]
